FAERS Safety Report 5286575-1 (Version None)
Quarter: 2007Q2

REPORT INFORMATION
  Report Type: 
  Country: None (occurrence: None)
  Receive Date: 20070404
  Receipt Date: 20070330
  Transmission Date: 20071010
  Serious: Yes (Death)
  Sender: FDA-Public Use
  Company Number: 2006UW21557

PATIENT
  Age: 308 Month
  Sex: Female

DRUGS (4)
  1. SEROQUEL [Suspect]
     Indication: BIPOLAR DISORDER
     Route: 048
     Dates: start: 20011008
  2. ZYPREXA [Concomitant]
     Dates: start: 20000101, end: 20050101
  3. NEURONTIN [Concomitant]
  4. XANAX [Concomitant]

REACTIONS (2)
  - DEATH [None]
  - DIABETES MELLITUS NON-INSULIN-DEPENDENT [None]
